FAERS Safety Report 21838542 (Version 3)
Quarter: 2023Q1

REPORT INFORMATION
  Report Type: Report from Study
  Country: US (occurrence: US)
  Receive Date: 20230109
  Receipt Date: 20230123
  Transmission Date: 20230417
  Serious: Yes (Hospitalization)
  Sender: FDA-Public Use
  Company Number: US-PFIZER INC-PV202200133609

PATIENT
  Age: 68 Year
  Sex: Male

DRUGS (2)
  1. TALAZOPARIB [Suspect]
     Active Substance: TALAZOPARIB
     Indication: Prostate cancer
     Dosage: 0.5 MG, DAILY
     Route: 048
     Dates: start: 20220922, end: 20221213
  2. AXITINIB [Suspect]
     Active Substance: AXITINIB
     Indication: Prostate cancer
     Dosage: 5 MG, 2X/DAY
     Route: 048
     Dates: start: 20220922, end: 20221213

REACTIONS (1)
  - Muscular weakness [Recovered/Resolved]

NARRATIVE: CASE EVENT DATE: 20221227
